FAERS Safety Report 16306412 (Version 1)
Quarter: 2019Q2

REPORT INFORMATION
  Report Type: Spontaneous
  Country: NL (occurrence: NL)
  Receive Date: 20190513
  Receipt Date: 20190513
  Transmission Date: 20190711
  Serious: Yes (Other)
  Sender: FDA-Public Use
  Company Number: PHHY2019NL098246

PATIENT
  Age: 41 Year
  Sex: Male

DRUGS (6)
  1. MORPHINE [Interacting]
     Active Substance: MORPHINE
     Indication: PAIN
     Dosage: 5 MG, QD
     Route: 061
  2. OXYCODONE HYDROCHLORIDE. [Interacting]
     Active Substance: OXYCODONE HYDROCHLORIDE
     Indication: PAIN
     Dosage: 20 MG, QD
     Route: 048
  3. TETRAHYDROCANNABINOL [Suspect]
     Active Substance: DRONABINOL
     Indication: PAIN
     Dosage: 3 MG CBD AND 1.95 MG THC, 4 X DAILY
     Route: 060
  4. PARACETAMOL [Interacting]
     Active Substance: ACETAMINOPHEN
     Indication: PAIN
     Dosage: 1000 MG, QD
     Route: 048
  5. CANNABIDIOL [Suspect]
     Active Substance: CANNABIDIOL
     Indication: PAIN
     Dosage: 3 MG CBD AND 1.95 MG THC, 4 X DAILY
     Route: 060
  6. IBUPROFEN. [Suspect]
     Active Substance: IBUPROFEN
     Indication: PAIN
     Dosage: 800 MG, QD
     Route: 048

REACTIONS (4)
  - Time perception altered [Recovering/Resolving]
  - Inadequate analgesia [Not Recovered/Not Resolved]
  - Slow response to stimuli [Recovering/Resolving]
  - Drug interaction [Recovering/Resolving]
